FAERS Safety Report 25997857 (Version 2)
Quarter: 2025Q4

REPORT INFORMATION
  Report Type: Report from Study
  Country: US (occurrence: US)
  Receive Date: 20251105
  Receipt Date: 20251107
  Transmission Date: 20260117
  Serious: Yes (Other)
  Sender: ABBVIE
  Company Number: US-ABBVIE-6524686

PATIENT
  Age: 81 Year
  Sex: Male

DRUGS (1)
  1. HUMIRA [Suspect]
     Active Substance: ADALIMUMAB
     Indication: Ankylosing spondylitis
     Dosage: DOSAGE: 40 MG/ML
     Route: 058
     Dates: start: 2022

REACTIONS (4)
  - Gait inability [Not Recovered/Not Resolved]
  - Joint range of motion decreased [Unknown]
  - Spinal fusion surgery [Unknown]
  - Exostosis [Unknown]

NARRATIVE: CASE EVENT DATE: 20250801
